FAERS Safety Report 19096394 (Version 1)
Quarter: 2021Q2

REPORT INFORMATION
  Report Type: Spontaneous
  Country: IE (occurrence: IE)
  Receive Date: 20210406
  Receipt Date: 20210406
  Transmission Date: 20210717
  Serious: Yes (Disabling)
  Sender: FDA-Public Use
  Company Number: IE-ACCORD-221857

PATIENT
  Age: 64 Year
  Sex: Female
  Weight: 65 kg

DRUGS (5)
  1. NOVORAPID [Concomitant]
     Active Substance: INSULIN ASPART
     Indication: DIABETES MELLITUS
     Dosage: 4?6 UNITS
     Dates: start: 19850106
  2. ASPIRIN. [Concomitant]
     Active Substance: ASPIRIN
     Indication: HYPERTENSION
     Dates: start: 19850106
  3. PRAVAMEL [Concomitant]
     Indication: HYPERTENSION
     Dosage: REPORTED START DATE 06/JAN/1985
  4. COVERSYL ARGININE [Suspect]
     Active Substance: PERINDOPRIL ARGININE
     Indication: HYPERTENSION
     Route: 048
     Dates: start: 20001106, end: 20210206
  5. LISINOPRIL. [Suspect]
     Active Substance: LISINOPRIL
     Indication: PRODUCT USED FOR UNKNOWN INDICATION

REACTIONS (10)
  - Upper-airway cough syndrome [Unknown]
  - Rhinitis [Unknown]
  - Retinal haemorrhage [Unknown]
  - Psoriasis [Unknown]
  - Disturbance in attention [Unknown]
  - Cough [Unknown]
  - Skin irritation [Unknown]
  - Mucosal disorder [Unknown]
  - Oropharyngeal pain [Unknown]
  - Insomnia [Unknown]
